FAERS Safety Report 7074297-6 (Version None)
Quarter: 2010Q4

REPORT INFORMATION
  Report Type: 
  Country: None (occurrence: None)
  Receive Date: 20101020
  Receipt Date: 20101013
  Transmission Date: 20110411
  Serious: Yes (Other)
  Sender: FDA-Public Use
  Company Number: 2010SP054938

PATIENT
  Sex: Female

DRUGS (1)
  1. SAPHRIS [Suspect]
     Indication: SCHIZOPHRENIA
     Dosage: 5 MG; BID
     Dates: end: 20101002

REACTIONS (3)
  - CONDITION AGGRAVATED [None]
  - HALLUCINATION [None]
  - SCHIZOPHRENIA [None]
